FAERS Safety Report 14271061 (Version 2)
Quarter: 2017Q4

REPORT INFORMATION
  Report Type: Report from Study
  Country: US (occurrence: US)
  Receive Date: 20171211
  Receipt Date: 20171220
  Transmission Date: 20180321
  Serious: Yes (Other)
  Sender: FDA-Public Use
  Company Number: US-BAYER-2017-237616

PATIENT
  Age: 83 Year
  Sex: Female
  Weight: 74.83 kg

DRUGS (2)
  1. WARFARIN [Concomitant]
     Active Substance: WARFARIN
     Dosage: UNK
  2. ADEMPAS [Suspect]
     Active Substance: RIOCIGUAT
     Indication: PULMONARY ARTERIAL HYPERTENSION
     Dosage: 0.5 MG, TID
     Route: 048
     Dates: start: 20171116

REACTIONS (10)
  - Fatigue [Unknown]
  - Heart rate increased [Unknown]
  - Cough [Unknown]
  - Rhinorrhoea [Unknown]
  - Nasopharyngitis [None]
  - Hypotension [None]
  - Haemoptysis [None]
  - Somnolence [Unknown]
  - Sneezing [Unknown]
  - Syncope [Unknown]

NARRATIVE: CASE EVENT DATE: 2017
